FAERS Safety Report 22149842 (Version 1)
Quarter: 2023Q1

REPORT INFORMATION
  Report Type: Spontaneous
  Country: US (occurrence: None)
  Receive Date: 20230329
  Receipt Date: 20230329
  Transmission Date: 20230417
  Serious: No
  Sender: FDA-Public Use
  Company Number: 2023A056755

PATIENT
  Sex: Male
  Weight: 85.7 kg

DRUGS (1)
  1. BREZTRI [Suspect]
     Active Substance: BUDESONIDE\FORMOTEROL\GLYCOPYRROLATE
     Indication: Chronic obstructive pulmonary disease
     Route: 055
     Dates: start: 2019

REACTIONS (5)
  - Gingival discomfort [Unknown]
  - Tooth injury [Unknown]
  - Dental caries [Unknown]
  - Tooth loss [Unknown]
  - Dysphonia [Unknown]
